FAERS Safety Report 7338773-0 (Version None)
Quarter: 2011Q1

REPORT INFORMATION
  Report Type: 
  Country: None (occurrence: None)
  Receive Date: 20110308
  Receipt Date: 20110223
  Transmission Date: 20110831
  Serious: Yes (Other)
  Sender: FDA-Public Use
  Company Number: PHHY2011FR15261

PATIENT
  Sex: Female

DRUGS (1)
  1. SANDIMMUNE [Suspect]
     Dosage: 100 MG, BID
     Dates: start: 20110223

REACTIONS (4)
  - DRUG HYPERSENSITIVITY [None]
  - CHILLS [None]
  - DYSPNOEA [None]
  - DRUG ADMINISTRATION ERROR [None]
